FAERS Safety Report 9132037 (Version 1)
Quarter: 2013Q1

REPORT INFORMATION
  Report Type: Report from Study
  Country: US (occurrence: US)
  Receive Date: 20130301
  Receipt Date: 20130301
  Transmission Date: 20140127
  Serious: Yes (Other)
  Sender: FDA-Public Use
  Company Number: US-MYLANLABS-2012S1000926

PATIENT
  Age: 13 Year
  Sex: Male
  Weight: 77.1 kg

DRUGS (4)
  1. CLARAVIS [Suspect]
     Indication: ACNE
     Dates: start: 20111003, end: 20111007
  2. AMNESTEEM CAPSULES [Suspect]
     Indication: ACNE
     Route: 048
     Dates: start: 20111101, end: 201112
  3. AMNESTEEM CAPSULES [Suspect]
     Indication: ACNE
     Route: 048
     Dates: start: 201112, end: 20120105
  4. DEPAKOTE [Concomitant]

REACTIONS (1)
  - Convulsion [Recovered/Resolved]
